FAERS Safety Report 23970778 (Version 5)
Quarter: 2025Q4

REPORT INFORMATION
  Report Type: Spontaneous
  Country: EU (occurrence: EU)
  Receive Date: 20240613
  Receipt Date: 20251015
  Transmission Date: 20260118
  Serious: Yes (Hospitalization, Other)
  Sender: AUROBINDO
  Company Number: EU-MLMSERVICE-20240527-PI077896-00029-1

PATIENT
  Age: 18 Year
  Sex: Female

DRUGS (2)
  1. ACETAMINOPHEN [Suspect]
     Active Substance: ACETAMINOPHEN
     Indication: Hyperthermia
     Dosage: AN ABNORMAL CONSUMPTION OF PARACETAMOL
     Route: 065
  2. ACETAMINOPHEN [Suspect]
     Active Substance: ACETAMINOPHEN
     Indication: Overdose
     Dosage: AT A THERAPEUTIC DOSE WITHIN THE CONTEXT OF HER HYPERTHERMIA DURING HOSPITALIZATION IN THE FIRST THR
     Route: 065

REACTIONS (11)
  - Metabolic acidosis [Recovered/Resolved]
  - Toxicity to various agents [Recovered/Resolved]
  - Maternal exposure during pregnancy [Recovered/Resolved]
  - Exposure during pregnancy [Unknown]
  - Pyroglutamic acidosis [Recovered/Resolved]
  - Sepsis [Unknown]
  - Foetal distress syndrome [Unknown]
  - Escherichia pyelonephritis [Unknown]
  - Caesarean section [Unknown]
  - Overdose [Unknown]
  - Intentional product misuse [Unknown]
